FAERS Safety Report 5745338-0 (Version None)
Quarter: 2008Q2

REPORT INFORMATION
  Report Type: 
  Country: None (occurrence: None)
  Receive Date: 20080521
  Receipt Date: 20080513
  Transmission Date: 20081010
  Serious: Yes (Disabling)
  Sender: FDA-Public Use
  Company Number: US-MERCK-0706USA03762

PATIENT
  Age: 43 Year
  Sex: Female
  Weight: 61 kg

DRUGS (7)
  1. FOSAMAX [Suspect]
     Indication: OSTEOPENIA
     Route: 048
     Dates: start: 20010201, end: 20050909
  2. FOSAMAX [Suspect]
     Route: 048
     Dates: start: 20051012, end: 20060905
  3. FOSAMAX [Suspect]
     Indication: OSTEOPOROSIS
     Route: 048
     Dates: start: 20010201, end: 20050909
  4. FOSAMAX [Suspect]
     Route: 048
     Dates: start: 20051012, end: 20060905
  5. ZARONTIN [Concomitant]
     Indication: CONVULSION
     Route: 065
     Dates: start: 19590101
  6. PHENOBARBITAL [Concomitant]
     Indication: CONVULSION
     Route: 065
     Dates: start: 19590101
  7. VITAMIN D (UNSPECIFIED) [Concomitant]
     Indication: OSTEOPOROSIS
     Route: 065
     Dates: start: 19940101, end: 20020101

REACTIONS (9)
  - ARTHRALGIA [None]
  - COMPLEX REGIONAL PAIN SYNDROME [None]
  - DUPUYTREN'S CONTRACTURE [None]
  - DYSPNOEA [None]
  - HAND FRACTURE [None]
  - HOT FLUSH [None]
  - PATELLA FRACTURE [None]
  - RHEUMATOID ARTHRITIS [None]
  - TEMPOROMANDIBULAR JOINT SYNDROME [None]
